FAERS Safety Report 7319659-4 (Version None)
Quarter: 2011Q1

REPORT INFORMATION
  Report Type: 
  Country: None (occurrence: None)
  Receive Date: 20110228
  Receipt Date: 20100707
  Transmission Date: 20110831
  Serious: No
  Sender: FDA-Public Use
  Company Number: A0868967A

PATIENT
  Sex: Female

DRUGS (5)
  1. PROZAC [Concomitant]
  2. LAMICTAL [Suspect]
     Indication: BIPOLAR DISORDER
     Dosage: 100MG TWICE PER DAY
     Route: 048
     Dates: start: 20100501
  3. LAMOTRIGINE [Suspect]
     Indication: BIPOLAR DISORDER
     Dosage: 100MG TWICE PER DAY
     Route: 048
     Dates: start: 20070101, end: 20100501
  4. NORVASC [Concomitant]
  5. ABILIFY [Concomitant]

REACTIONS (3)
  - HAIR TEXTURE ABNORMAL [None]
  - HYPERSOMNIA [None]
  - HAIR DISORDER [None]
